FAERS Safety Report 5844801-1 (Version None)
Quarter: 2008Q3

REPORT INFORMATION
  Report Type: 
  Country: None (occurrence: None)
  Receive Date: 20080814
  Receipt Date: 20080807
  Transmission Date: 20090109
  Serious: Yes (Hospitalization)
  Sender: FDA-Public Use
  Company Number: US-CELGENEUS-163-20785-08050598

PATIENT
  Sex: Male
  Weight: 94.8 kg

DRUGS (15)
  1. THALOMID [Suspect]
     Indication: MULTIPLE MYELOMA
     Route: 048
     Dates: end: 20080403
  2. THALOMID [Suspect]
     Route: 048
     Dates: start: 20060503, end: 20070101
  3. DEXAMETHASONE TAB [Suspect]
     Indication: MULTIPLE MYELOMA
     Route: 048
     Dates: end: 20080320
  4. DEXAMETHASONE TAB [Suspect]
     Dosage: 20-40 MG
     Route: 048
     Dates: start: 20060503, end: 20070101
  5. VELCADE [Suspect]
     Indication: MULTIPLE MYELOMA
     Route: 051
     Dates: end: 20080320
  6. VELCADE [Suspect]
     Route: 051
     Dates: start: 20060503
  7. LEVOTHYROXINE SODIUM [Concomitant]
     Indication: DRUG USE FOR UNKNOWN INDICATION
     Route: 048
  8. VYTORIN [Concomitant]
     Indication: DRUG USE FOR UNKNOWN INDICATION
     Dosage: 10MG-40 MG
     Route: 048
  9. ACYCLOVIR [Concomitant]
     Indication: DRUG USE FOR UNKNOWN INDICATION
     Route: 048
  10. ASPIRIN [Concomitant]
     Indication: DRUG USE FOR UNKNOWN INDICATION
     Route: 048
  11. GLIPIZIDE [Concomitant]
     Indication: DRUG USE FOR UNKNOWN INDICATION
     Route: 048
  12. LYRICA [Concomitant]
     Indication: DRUG USE FOR UNKNOWN INDICATION
     Route: 048
  13. METFORMIN HCL [Concomitant]
     Indication: DRUG USE FOR UNKNOWN INDICATION
     Route: 048
  14. MULTI-VITAMINS [Concomitant]
     Indication: DRUG USE FOR UNKNOWN INDICATION
     Route: 048
  15. TOPROL-XL [Concomitant]
     Indication: DRUG USE FOR UNKNOWN INDICATION
     Route: 048

REACTIONS (5)
  - ABDOMINAL ABSCESS [None]
  - COLONIC OBSTRUCTION [None]
  - COLONIC STENOSIS [None]
  - DIVERTICULITIS [None]
  - LARGE INTESTINE PERFORATION [None]
